FAERS Safety Report 19377313 (Version 1)
Quarter: 2021Q2

REPORT INFORMATION
  Report Type: Other
  Country: US (occurrence: US)
  Receive Date: 20210605
  Receipt Date: 20210605
  Transmission Date: 20210717
  Serious: Yes (Other)
  Sender: FDA-Public Use
  Company Number: US-ROCHE-2365495

PATIENT
  Sex: Female

DRUGS (3)
  1. ACTEMRA [Suspect]
     Active Substance: TOCILIZUMAB
  2. ACTEMRA [Suspect]
     Active Substance: TOCILIZUMAB
     Indication: GIANT CELL ARTERITIS
     Dosage: INJECT 0.9ML (162MG) SUBCUTANEOUSLY BI?MONTHLY AS?EXPIRY DATE? 01/MAR/2022, 27/MAY/2022
     Route: 058
  3. ACTEMRA [Suspect]
     Active Substance: TOCILIZUMAB

REACTIONS (5)
  - Deafness [Not Recovered/Not Resolved]
  - Confusional state [Not Recovered/Not Resolved]
  - Dysphemia [Unknown]
  - Pruritus [Unknown]
  - Cerebrovascular accident [Unknown]
